FAERS Safety Report 6113553-2 (Version None)
Quarter: 2009Q1

REPORT INFORMATION
  Report Type: 
  Country: None (occurrence: None)
  Receive Date: 20090312
  Receipt Date: 20090302
  Transmission Date: 20090719
  Serious: Yes (Hospitalization)
  Sender: FDA-Public Use
  Company Number: JP-AMGEN-US329442

PATIENT
  Sex: Male
  Weight: 76 kg

DRUGS (24)
  1. PANITUMUMAB [Suspect]
     Indication: SQUAMOUS CELL CARCINOMA
     Route: 041
     Dates: start: 20081217, end: 20081217
  2. CISPLATIN [Suspect]
     Route: 042
     Dates: start: 20081217, end: 20090109
  3. FLUOROURACIL [Concomitant]
     Indication: SQUAMOUS CELL CARCINOMA
     Route: 041
     Dates: start: 20081217, end: 20081221
  4. FLUOROURACIL [Concomitant]
     Route: 041
     Dates: start: 20090109, end: 20090113
  5. MUCODYNE [Concomitant]
     Indication: SPUTUM RETENTION
     Route: 048
  6. CALCIUM LACTATE [Concomitant]
     Indication: MINERAL SUPPLEMENTATION
     Route: 048
     Dates: end: 20090121
  7. BIOFERMIN [Concomitant]
     Indication: DISBACTERIOSIS
     Route: 048
  8. KYTRIL [Concomitant]
     Indication: PROPHYLAXIS OF NAUSEA AND VOMITING
     Route: 041
     Dates: start: 20090109, end: 20090109
  9. PRIMPERAN INJ [Concomitant]
     Indication: PROPHYLAXIS OF NAUSEA AND VOMITING
     Route: 042
     Dates: start: 20090110, end: 20090112
  10. LASIX [Concomitant]
     Route: 042
     Dates: start: 20090110, end: 20090110
  11. LASIX [Concomitant]
     Route: 042
     Dates: start: 20090116, end: 20090116
  12. SODIUM CHLORIDE [Concomitant]
     Indication: ELECTROLYTE SUBSTITUTION THERAPY
     Route: 042
     Dates: start: 20090106, end: 20090116
  13. KERATINAMIN [Concomitant]
     Indication: RASH
     Route: 062
     Dates: start: 20090114
  14. BISOLVON [Concomitant]
     Indication: SPUTUM RETENTION
     Route: 055
  15. EMPYNASE [Concomitant]
     Route: 048
  16. DEXAMETHASONE SODIUM PHOSPHATE [Concomitant]
     Route: 042
     Dates: start: 20090109, end: 20090112
  17. ELECTROLYTES NOS [Concomitant]
     Route: 042
     Dates: start: 20090105, end: 20090126
  18. LACTATED RINGER'S [Concomitant]
     Route: 042
     Dates: start: 20090105, end: 20090117
  19. CALCIUM CHLORIDE DIHYDRATE [Concomitant]
     Route: 042
     Dates: start: 20090105, end: 20090126
  20. ASPARA K [Concomitant]
     Route: 042
     Dates: start: 20090108, end: 20090126
  21. MAGNESIUM SULFATE [Concomitant]
     Route: 042
     Dates: start: 20090110, end: 20090116
  22. CALCIUM GLUCONATE [Concomitant]
     Route: 042
     Dates: start: 20090113, end: 20090115
  23. RINDERON-V [Concomitant]
     Route: 062
  24. ORCIPRENALINE SULFATE [Concomitant]
     Route: 055

REACTIONS (2)
  - RENAL IMPAIRMENT [None]
  - SEPSIS [None]
